FAERS Safety Report 6834903-5 (Version None)
Quarter: 2010Q3

REPORT INFORMATION
  Report Type: 
  Country: None (occurrence: None)
  Receive Date: 20100712
  Receipt Date: 20071009
  Transmission Date: 20110219
  Serious: Yes (Other)
  Sender: FDA-Public Use
  Company Number: US-PFIZER INC-2007025083

PATIENT
  Sex: Female

DRUGS (2)
  1. CHANTIX [Suspect]
     Route: 048
     Dates: start: 20070308
  2. CHANTIX [Suspect]
     Dosage: 1 MG (0.5MG, 2 IN 1 D)
     Route: 048
     Dates: start: 20070101

REACTIONS (6)
  - ABDOMINAL DISCOMFORT [None]
  - ABDOMINAL DISTENSION [None]
  - ABDOMINAL PAIN [None]
  - ERUCTATION [None]
  - NAUSEA [None]
  - VOMITING [None]
